FAERS Safety Report 8854084 (Version 1)
Quarter: 2012Q4

REPORT INFORMATION
  Report Type: Spontaneous
  Country: US (occurrence: None)
  Receive Date: 20121019
  Receipt Date: 20121019
  Transmission Date: 20130627
  Serious: No
  Sender: FDA-Public Use
  Company Number: None

PATIENT
  Age: 51 Year
  Sex: Male
  Weight: 85.28 kg

DRUGS (2)
  1. DAKINS FULL [Suspect]
     Indication: OSTEOMYELITIS
     Dosage: continuous irrigation
     Route: 061
     Dates: start: 20121008, end: 20121016
  2. DAKINS FULL [Suspect]
     Indication: SOFT TISSUE INFECTION
     Dosage: continuous irrigation
     Route: 061
     Dates: start: 20121008, end: 20121016

REACTIONS (2)
  - Chemical injury [None]
  - No reaction on previous exposure to drug [None]
